FAERS Safety Report 8924539 (Version 1)
Quarter: 2012Q4

REPORT INFORMATION
  Report Type: 
  Country: DE (occurrence: DE)
  Receive Date: 20121126
  Receipt Date: 20121126
  Transmission Date: 20130627
  Serious: Yes (Death)
  Sender: FDA-Public Use
  Company Number: DE-TEVA-370612GER

PATIENT
  Age: 52 Year
  Sex: Female

DRUGS (12)
  1. DOXEPIN [Suspect]
     Dosage: 25 Milligram Daily;
     Route: 065
  2. DOXEPIN [Interacting]
     Dosage: 100 Milligram Daily;
     Route: 065
  3. DOXEPIN [Interacting]
     Dosage: 125 Milligram Daily;
     Route: 065
  4. AMLODIPINE [Interacting]
     Dosage: 2.5 Milligram Daily;
     Route: 065
  5. AMLODIPINE [Interacting]
     Dosage: 7.5 Milligram Daily;
     Route: 065
  6. AMLODIPINE [Interacting]
     Dosage: 10 Milligram Daily;
     Route: 065
  7. PROTHIPENDYL [Interacting]
     Route: 065
  8. OLANZAPINE [Concomitant]
     Route: 065
  9. TILIDINE [Concomitant]
     Route: 065
  10. DIAZEPAM [Concomitant]
     Route: 065
  11. METOPROLOL [Concomitant]
     Route: 065
  12. IBUPROFEN [Concomitant]
     Route: 065

REACTIONS (4)
  - Toxicity to various agents [Fatal]
  - Drug interaction [Fatal]
  - Somnolence [Not Recovered/Not Resolved]
  - Salivary hypersecretion [Not Recovered/Not Resolved]
